FAERS Safety Report 7725332-0 (Version None)
Quarter: 2011Q3

REPORT INFORMATION
  Report Type: 
  Country: None (occurrence: None)
  Receive Date: 20110829
  Receipt Date: 20110811
  Transmission Date: 20111222
  Serious: Yes (Death, Hospitalization)
  Sender: FDA-Public Use
  Company Number: 2011MA011692

PATIENT
  Age: 67 Year
  Sex: Female

DRUGS (1)
  1. METFORMIN HYDROCHLORIDE [Suspect]
     Indication: TYPE 2 DIABETES MELLITUS
     Dosage: 1000 MG; QD

REACTIONS (3)
  - LACTIC ACIDOSIS [None]
  - SHOCK HAEMORRHAGIC [None]
  - HEPATIC FAILURE [None]
